FAERS Safety Report 5839199-9 (Version None)
Quarter: 2008Q3

REPORT INFORMATION
  Report Type: 
  Country: None (occurrence: None)
  Receive Date: 20080808
  Receipt Date: 20080801
  Transmission Date: 20090109
  Serious: Yes (Other)
  Sender: FDA-Public Use
  Company Number: US-MERCK-0808USA00162

PATIENT
  Age: 57 Year
  Sex: Female
  Weight: 96 kg

DRUGS (13)
  1. SINGULAIR [Suspect]
     Indication: ASTHMA
     Route: 048
     Dates: start: 20080703, end: 20080716
  2. LYRICA [Suspect]
     Indication: FIBROMYALGIA
     Route: 048
     Dates: start: 20080703, end: 20080716
  3. ATENOLOL [Concomitant]
     Route: 065
  4. ACIPHEX [Concomitant]
     Route: 065
  5. TOPAMAX [Concomitant]
     Route: 065
  6. VYTORIN [Concomitant]
     Route: 048
  7. CYMBALTA [Concomitant]
     Route: 065
  8. POTASSIUM CHLORIDE [Concomitant]
     Route: 065
  9. ADVAIR DISKUS 100/50 [Concomitant]
     Indication: ASTHMA
     Route: 065
  10. PROVENTIL GENTLEHALER [Concomitant]
     Route: 065
  11. OMEGA-3 MARINE TRIGLYCERIDES [Concomitant]
     Route: 065
  12. VITAMIN E [Concomitant]
     Route: 065
  13. ECHINACEA (UNSPECIFIED) [Concomitant]
     Route: 065

REACTIONS (11)
  - ASTHENIA [None]
  - CHEST PAIN [None]
  - DIZZINESS [None]
  - DYSPNOEA [None]
  - FIBROMYALGIA [None]
  - JOINT SWELLING [None]
  - LUNG INFECTION [None]
  - NAUSEA [None]
  - OEDEMA PERIPHERAL [None]
  - PO2 DECREASED [None]
  - PRESYNCOPE [None]
